FAERS Safety Report 15330405 (Version 1)
Quarter: 2018Q3

REPORT INFORMATION
  Report Type: Spontaneous
  Country: US (occurrence: US)
  Receive Date: 20180829
  Receipt Date: 20180829
  Transmission Date: 20181010
  Serious: No
  Sender: FDA-Public Use
  Company Number: US-PHARMING-PHAUS2018000556

PATIENT

DRUGS (1)
  1. RUCONEST [Suspect]
     Active Substance: HUMAN C1-ESTERASE INHIBITOR
     Indication: HEREDITARY ANGIOEDEMA
     Dosage: 4200 IU, EVERY THREE DAYS
     Route: 042
     Dates: start: 201710

REACTIONS (3)
  - Off label use [Not Recovered/Not Resolved]
  - Peripheral swelling [Unknown]
  - Vascular access complication [Unknown]

NARRATIVE: CASE EVENT DATE: 201710
